FAERS Safety Report 4968319-3 (Version None)
Quarter: 2006Q2

REPORT INFORMATION
  Report Type: 
  Country: None (occurrence: None)
  Receive Date: 20060405
  Receipt Date: 20060322
  Transmission Date: 20061013
  Serious: Yes (Hospitalization)
  Sender: FDA-Public Use
  Company Number: 2006MP000471

PATIENT
  Age: 70 Year
  Sex: Male

DRUGS (1)
  1. GLIADEL [Suspect]
     Indication: GLIOBLASTOMA
     Dosage: X1; ICER
     Dates: start: 20060101, end: 20060101

REACTIONS (8)
  - CHEST X-RAY ABNORMAL [None]
  - COGNITIVE DISORDER [None]
  - CULTURE POSITIVE [None]
  - ENTEROCOCCAL INFECTION [None]
  - LUNG DISORDER [None]
  - OXYGEN SATURATION DECREASED [None]
  - POSTOPERATIVE WOUND COMPLICATION [None]
  - PYREXIA [None]
